FAERS Safety Report 18014979 (Version 1)
Quarter: 2020Q3

REPORT INFORMATION
  Report Type: Spontaneous
  Country: IE (occurrence: IE)
  Receive Date: 20200713
  Receipt Date: 20200713
  Transmission Date: 20201103
  Serious: Yes (Other)
  Sender: FDA-Public Use
  Company Number: IE-GLAXOSMITHKLINE-IE2020GSK120077

PATIENT
  Age: 32 Year
  Sex: Female

DRUGS (7)
  1. FLUCLOXACILLIN [Suspect]
     Active Substance: FLUCLOXACILLIN
     Indication: BLISTER
  2. FLUCLOXACILLIN [Suspect]
     Active Substance: FLUCLOXACILLIN
     Indication: RASH PRURITIC
     Dosage: UNK
     Route: 048
  3. TERBINAFINE. [Suspect]
     Active Substance: TERBINAFINE
     Indication: BLISTER
  4. BETAMETHASONE. [Suspect]
     Active Substance: BETAMETHASONE
     Indication: RASH PRURITIC
     Dosage: UNK
     Route: 061
  5. DICLOFENAC [Suspect]
     Active Substance: DICLOFENAC
     Indication: PRODUCT USED FOR UNKNOWN INDICATION
     Dosage: 10MG/G TO HER BODY
     Route: 061
  6. TERBINAFINE. [Suspect]
     Active Substance: TERBINAFINE
     Indication: RASH PRURITIC
     Dosage: UNK
  7. BETAMETHASONE. [Suspect]
     Active Substance: BETAMETHASONE
     Indication: BLISTER

REACTIONS (12)
  - Acantholysis [Recovered/Resolved]
  - Subcorneal pustular dermatosis [Recovered/Resolved]
  - Therapeutic product effect incomplete [Unknown]
  - Rash [Recovered/Resolved]
  - Skin erosion [Recovered/Resolved]
  - Rash erythematous [Recovered/Resolved]
  - Scab [Recovered/Resolved]
  - Blister [Recovered/Resolved]
  - Skin disorder [Recovered/Resolved]
  - Pemphigus [Recovered/Resolved]
  - Rash pruritic [Recovered/Resolved]
  - Rash papulosquamous [Recovered/Resolved]
